FAERS Safety Report 10641255 (Version 2)
Quarter: 2014Q4

REPORT INFORMATION
  Report Type: Spontaneous
  Country: JP (occurrence: JP)
  Receive Date: 20141209
  Receipt Date: 20141219
  Transmission Date: 20150529
  Serious: Yes (Other)
  Sender: FDA-Public Use
  Company Number: JP-SA-2014SA167248

PATIENT
  Age: 72 Year
  Sex: Male
  Weight: 52 kg

DRUGS (15)
  1. GRANISETRON [Concomitant]
     Active Substance: GRANISETRON
     Dates: start: 20141104, end: 20141118
  2. ELPLAT [Suspect]
     Active Substance: OXALIPLATIN
     Indication: RECTAL CANCER
     Route: 041
     Dates: end: 20141118
  3. 5-FU [Concomitant]
     Active Substance: FLUOROURACIL
     Route: 040
     Dates: start: 20141104, end: 20141104
  4. 5-FU [Concomitant]
     Active Substance: FLUOROURACIL
     Route: 041
     Dates: start: 20141118, end: 20141118
  5. LACB-R [Concomitant]
     Dosage: POWDER (EXCEPT [DPO])
  6. 5-FU [Concomitant]
     Active Substance: FLUOROURACIL
     Dosage: DOSE:2437.9 MG/M2/D1-2
     Route: 041
     Dates: start: 20141104, end: 20141104
  7. 5-FU [Concomitant]
     Active Substance: FLUOROURACIL
     Route: 040
     Dates: start: 20141118, end: 20141118
  8. MUCOSTA [Concomitant]
     Active Substance: REBAMIPIDE
  9. DECADRON [Concomitant]
     Active Substance: DEXAMETHASONE
     Dates: start: 20141104, end: 20141118
  10. LANSOPRAZOLE. [Concomitant]
     Active Substance: LANSOPRAZOLE
     Route: 048
  11. HERBAL EXTRACT NOS [Concomitant]
     Active Substance: HERBALS
     Dosage: POWDER (EXCEPT [DPO])
  12. AZUNOL [Concomitant]
     Active Substance: SODIUM GUALENATE
     Dosage: OINTMENT, CREAM
     Dates: start: 20141125, end: 20141201
  13. ELPLAT [Suspect]
     Active Substance: OXALIPLATIN
     Indication: RECTAL CANCER
     Route: 041
     Dates: start: 20141104, end: 20141104
  14. AVASTIN [Concomitant]
     Active Substance: BEVACIZUMAB
     Indication: COLON CANCER
     Dosage: DOSE: 250MG/BODY?GENETICAL RECOMBINATION
     Dates: start: 20141104, end: 20141118
  15. CALCIUM LEVOFOLINATE [Concomitant]
     Active Substance: LEVOLEUCOVORIN CALCIUM
     Dosage: INFUSION
     Route: 042
     Dates: start: 20141104, end: 20141118

REACTIONS (3)
  - Movement disorder [Recovered/Resolved]
  - Erythema [Recovered/Resolved]
  - Peripheral swelling [Recovered/Resolved]

NARRATIVE: CASE EVENT DATE: 20141125
